FAERS Safety Report 13361949 (Version 1)
Quarter: 2017Q1

REPORT INFORMATION
  Report Type: Spontaneous
  Country: US (occurrence: US)
  Receive Date: 20170321
  Receipt Date: 20170321
  Transmission Date: 20170429
  Serious: Yes (Death, Life-Threatening, Hospitalization, Disabling, Other)
  Sender: FDA-Public Use
  Company Number: None

PATIENT
  Age: 87 Year
  Sex: Female
  Weight: 72.64 kg

DRUGS (2)
  1. LORAZEPAM 2 MG RX# C798629 #5 057 MYLAN 777(LORAZEPAM 2MG) [Suspect]
     Active Substance: LORAZEPAM
     Indication: SEDATION
     Dates: start: 20170124, end: 20170203
  2. ALBUTEROL 0.83 PR CNT 25 3ML [Suspect]
     Active Substance: ALBUTEROL SULFATE
     Indication: PRODUCT USED FOR UNKNOWN INDICATION
     Dosage: 1 AMPULE

REACTIONS (2)
  - Unevaluable event [None]
  - Overdose [None]

NARRATIVE: CASE EVENT DATE: 20170203
